FAERS Safety Report 6253923-5 (Version None)
Quarter: 2009Q3

REPORT INFORMATION
  Report Type: 
  Country: None (occurrence: None)
  Receive Date: 20090701
  Receipt Date: 20090701
  Transmission Date: 20100115
  Serious: No
  Sender: FDA-Public Use
  Company Number: None

PATIENT
  Age: 86 Year
  Sex: Male
  Weight: 63.5 kg

DRUGS (2)
  1. LANTUS [Suspect]
     Indication: DIABETES MELLITUS
     Dosage: 10 UNITS BEDTIME SQ
     Route: 058
     Dates: start: 20090614, end: 20090630
  2. NEXIUM [Suspect]
     Indication: GASTROINTESTINAL HAEMORRHAGE
     Dosage: 40MG BID IV
     Route: 042
     Dates: start: 20090614, end: 20090620

REACTIONS (2)
  - INCORRECT DOSE ADMINISTERED [None]
  - MEDICATION ERROR [None]
